FAERS Safety Report 9448094 (Version 3)
Quarter: 2013Q3

REPORT INFORMATION
  Report Type: Spontaneous
  Country: AT (occurrence: AT)
  Receive Date: 20130808
  Receipt Date: 20130912
  Transmission Date: 20140515
  Serious: Yes (Other)
  Sender: FDA-Public Use
  Company Number: AT-ASTRAZENECA-2013SE57134

PATIENT
  Age: 77 Year
  Sex: Male
  Weight: 82 kg

DRUGS (7)
  1. LISINOPRIL [Suspect]
     Route: 048
  2. BRILIQUE [Suspect]
     Route: 048
  3. BRILIQUE [Suspect]
     Route: 048
  4. THROMBO ASS [Concomitant]
  5. ATORVASTATIN [Concomitant]
  6. ARIXTRA [Concomitant]
  7. NEBIVOLOL [Concomitant]

REACTIONS (5)
  - Ventricular hypokinesia [Not Recovered/Not Resolved]
  - Coronary artery occlusion [Unknown]
  - Ejection fraction decreased [Not Recovered/Not Resolved]
  - Cardiac failure congestive [Unknown]
  - Dyspnoea exertional [Unknown]
